FAERS Safety Report 7206868-8 (Version None)
Quarter: 2010Q4

REPORT INFORMATION
  Report Type: 
  Country: None (occurrence: None)
  Receive Date: 20101221
  Receipt Date: 20101206
  Transmission Date: 20110411
  Serious: Yes (Hospitalization, Other)
  Sender: FDA-Public Use
  Company Number: ALA_01175_2010

PATIENT
  Sex: Female
  Weight: 147 kg

DRUGS (9)
  1. REGLAN [Suspect]
     Indication: GASTROOESOPHAGEAL REFLUX DISEASE
     Dosage: DF ORAL
     Route: 048
     Dates: start: 20061101, end: 20090201
  2. PHENERGAN /00033002/ [Concomitant]
  3. BENADRYL [Concomitant]
  4. LISINOPRIL AND HYDROCHLOROTHIAZIDE [Concomitant]
  5. SUCRALFATE [Concomitant]
  6. FEXOFENADINE HCL [Concomitant]
  7. MECLIZINE /0072801/ [Concomitant]
  8. PRAVASTATIN [Concomitant]
  9. PROTONIX [Concomitant]

REACTIONS (17)
  - BALANCE DISORDER [None]
  - CEREBRAL ATROPHY [None]
  - CONDITION AGGRAVATED [None]
  - ECONOMIC PROBLEM [None]
  - EMOTIONAL DISORDER [None]
  - FACIAL PAIN [None]
  - FALL [None]
  - GAIT DISTURBANCE [None]
  - INJURY [None]
  - INTERVERTEBRAL DISC DEGENERATION [None]
  - JAW CYST [None]
  - PERIVENTRICULAR LEUKOMALACIA [None]
  - PRESYNCOPE [None]
  - RESTLESS LEGS SYNDROME [None]
  - SURGERY [None]
  - TARDIVE DYSKINESIA [None]
  - TEMPOROMANDIBULAR JOINT SYNDROME [None]
